FAERS Safety Report 12640186 (Version 1)
Quarter: 2016Q3

REPORT INFORMATION
  Report Type: Report from Study
  Country: GB (occurrence: GB)
  Receive Date: 20160810
  Receipt Date: 20160810
  Transmission Date: 20161109
  Serious: Yes (Death, Hospitalization, Other)
  Sender: FDA-Public Use
  Company Number: GB-ASTELLAS-2009003798

PATIENT
  Age: 61 Year
  Sex: Male

DRUGS (8)
  1. DEXAMETHASONE. [Concomitant]
     Active Substance: DEXAMETHASONE
     Indication: PRODUCT USED FOR UNKNOWN INDICATION
     Route: 048
     Dates: start: 20091008, end: 20091202
  2. ERLOTINIB [Suspect]
     Active Substance: ERLOTINIB
     Indication: NON-SMALL CELL LUNG CANCER
     Dosage: 100 MG, ONCE DAILY DURING WBRT.
     Route: 048
     Dates: start: 20091026, end: 20091102
  3. ERLOTINIB [Suspect]
     Active Substance: ERLOTINIB
     Indication: METASTASES TO CENTRAL NERVOUS SYSTEM
     Dosage: 150 MG, ONCE DAILY AFTER WBRT.
     Route: 048
     Dates: start: 20091026, end: 20091102
  4. SIMVASTATIN. [Concomitant]
     Active Substance: SIMVASTATIN
     Indication: PRODUCT USED FOR UNKNOWN INDICATION
     Route: 048
     Dates: start: 20091008, end: 20091202
  5. ATENOLOL. [Concomitant]
     Active Substance: ATENOLOL
     Indication: PRODUCT USED FOR UNKNOWN INDICATION
     Route: 048
     Dates: start: 20091008, end: 20091202
  6. AMLODIPINE [Concomitant]
     Active Substance: AMLODIPINE BESYLATE
     Indication: PRODUCT USED FOR UNKNOWN INDICATION
     Route: 048
     Dates: start: 20091008, end: 20091202
  7. BENDROFLUMETHIAZIDE [Concomitant]
     Active Substance: BENDROFLUMETHIAZIDE
     Indication: PRODUCT USED FOR UNKNOWN INDICATION
     Route: 048
     Dates: start: 20091008, end: 20091202
  8. OMEPRAZOLE. [Concomitant]
     Active Substance: OMEPRAZOLE
     Indication: PRODUCT USED FOR UNKNOWN INDICATION
     Route: 048
     Dates: start: 20091008, end: 20091202

REACTIONS (2)
  - Sepsis [Fatal]
  - Muscular weakness [Not Recovered/Not Resolved]

NARRATIVE: CASE EVENT DATE: 20091129
